FAERS Safety Report 5386444-2 (Version None)
Quarter: 2007Q3

REPORT INFORMATION
  Report Type: 
  Country: None (occurrence: None)
  Receive Date: 20070710
  Receipt Date: 20070704
  Transmission Date: 20080115
  Serious: Yes (Life-Threatening)
  Sender: FDA-Public Use
  Company Number: 2007-160417-NL

PATIENT
  Age: 24 Year
  Sex: Male

DRUGS (7)
  1. VECURONIUM BROMIDE [Suspect]
     Indication: INDUCTION OF ANAESTHESIA
     Dosage: 10 MG ONCE/20 MG ONCE INTRAVENOUS (NOS)
     Route: 042
     Dates: start: 20060622, end: 20060622
  2. VECURONIUM BROMIDE [Suspect]
     Indication: MAINTENANCE OF ANAESTHESIA
     Dosage: 10 MG ONCE/20 MG ONCE INTRAVENOUS (NOS)
     Route: 042
     Dates: start: 20060622, end: 20060622
  3. VECURONIUM BROMIDE [Suspect]
     Indication: INDUCTION OF ANAESTHESIA
     Dosage: 10 MG ONCE/20 MG ONCE INTRAVENOUS (NOS)
     Route: 042
     Dates: start: 20060622, end: 20060622
  4. VECURONIUM BROMIDE [Suspect]
     Indication: MAINTENANCE OF ANAESTHESIA
     Dosage: 10 MG ONCE/20 MG ONCE INTRAVENOUS (NOS)
     Route: 042
     Dates: start: 20060622, end: 20060622
  5. PURSENNID [Concomitant]
  6. RILMAZAFONE [Concomitant]
  7. DEQUALINIUM CHLORIDE [Concomitant]

REACTIONS (2)
  - DIAPHRAGMATIC HERNIA [None]
  - MECHANICAL VENTILATION COMPLICATION [None]
